FAERS Safety Report 8499014 (Version 6)
Quarter: 2013Q2

REPORT INFORMATION
  Report Type: Spontaneous
  Country: US (occurrence: US)
  Receive Date: 20120409
  Receipt Date: 20130610
  Transmission Date: 20140414
  Serious: Yes (Other)
  Sender: FDA-Public Use
  Company Number: US-PFIZER INC-2012084533

PATIENT
  Age: 47 Year
  Sex: Female
  Weight: 49.89 kg

DRUGS (9)
  1. EFFEXOR XR [Suspect]
     Indication: DEPRESSION
     Dosage: 150 MG, 1X/DAY
     Route: 048
     Dates: start: 1993
  2. EFFEXOR XR [Suspect]
     Indication: PANIC ATTACK
     Dosage: 300 MG (TWO PILLS OF 150 MG), DAILY
     Route: 048
     Dates: start: 2006
  3. EFFEXOR XR [Suspect]
     Indication: ANXIETY
  4. ACETAMINOPHEN W/HYDROCODONE BITARTRATE [Suspect]
     Indication: NECK PAIN
     Dosage: UNK
  5. KLONOPIN [Concomitant]
     Indication: ANXIETY
     Dosage: 10 MG, AS NEEDED
  6. TRAZODONE [Concomitant]
     Dosage: 50 BEFORE SLEEP
  7. CLONAZEPAM [Concomitant]
     Indication: ANXIETY
     Dosage: 1 MG, 1X/DAY
  8. CLONAZEPAM [Concomitant]
     Dosage: 1 MG, 2X/DAY
  9. CLONAZEPAM [Concomitant]
     Dosage: 1 MG, 3X/DAY

REACTIONS (6)
  - Road traffic accident [Unknown]
  - Intervertebral disc injury [Unknown]
  - Neck pain [Not Recovered/Not Resolved]
  - Malaise [Unknown]
  - Vomiting [Unknown]
  - Drug ineffective [Unknown]
